FAERS Safety Report 4737693-5 (Version None)
Quarter: 2005Q3

REPORT INFORMATION
  Report Type: 
  Country: None (occurrence: None)
  Receive Date: 20050809
  Receipt Date: 20050615
  Transmission Date: 20060218
  Serious: No
  Sender: FDA-Public Use
  Company Number: US-GLAXOSMITHKLINE-A0562767A

PATIENT
  Age: 67 Year
  Sex: Female

DRUGS (3)
  1. COMMIT [Suspect]
     Dates: start: 20050411
  2. IBUPROFEN [Concomitant]
  3. PAIN MEDICATIONS [Concomitant]

REACTIONS (1)
  - GINGIVAL BLEEDING [None]
